FAERS Safety Report 5223866-4 (Version None)
Quarter: 2007Q1

REPORT INFORMATION
  Report Type: 
  Country: None (occurrence: None)
  Receive Date: 20070130
  Receipt Date: 20070119
  Transmission Date: 20070707
  Serious: Yes (Other)
  Sender: FDA-Public Use
  Company Number: US-AVENTIS-200615765US

PATIENT
  Sex: Female
  Weight: 75.75 kg

DRUGS (2)
  1. ARAVA [Suspect]
     Indication: RHEUMATOID ARTHRITIS
     Dosage: DOSE: UNK
     Route: 048
  2. PREDNISONE [Suspect]
     Indication: RHEUMATOID ARTHRITIS
     Route: 048
     Dates: start: 20060816, end: 20061001

REACTIONS (7)
  - ALPHA 1 FOETOPROTEIN ABNORMAL [None]
  - ARTHRALGIA [None]
  - CAESAREAN SECTION [None]
  - DRUG INEFFECTIVE [None]
  - HAEMOGLOBIN DECREASED [None]
  - PREMATURE BABY [None]
  - PREMATURE LABOUR [None]
